FAERS Safety Report 8047629-X (Version None)
Quarter: 2012Q1

REPORT INFORMATION
  Report Type: 
  Country: None (occurrence: None)
  Receive Date: 20120116
  Receipt Date: 20120103
  Transmission Date: 20120608
  Serious: Yes (Other)
  Sender: FDA-Public Use
  Company Number: AU-GLAXOSMITHKLINE-B0774137A

PATIENT
  Age: 63 Year
  Sex: Female

DRUGS (4)
  1. TEGRETOL [Concomitant]
     Route: 065
  2. OXYCODONE HCL [Concomitant]
     Indication: GROIN PAIN
     Route: 065
  3. NORSPAN [Concomitant]
     Route: 065
  4. LAMICTAL [Suspect]
     Indication: PRODUCT USED FOR UNKNOWN INDICATION
     Route: 065
     Dates: start: 20111221

REACTIONS (12)
  - DRUG HYPERSENSITIVITY [None]
  - HAEMORRHAGE [None]
  - PRURITUS [None]
  - ERYTHEMA [None]
  - RENAL NECROSIS [None]
  - RASH MACULAR [None]
  - HYPERSENSITIVITY [None]
  - CONTUSION [None]
  - FALL [None]
  - DYSPNOEA [None]
  - BURNING SENSATION [None]
  - RASH GENERALISED [None]
